FAERS Safety Report 5229941-2 (Version None)
Quarter: 2007Q1

REPORT INFORMATION
  Report Type: 
  Country: None (occurrence: None)
  Receive Date: 20070206
  Receipt Date: 20060713
  Transmission Date: 20070707
  Serious: No
  Sender: FDA-Public Use
  Company Number: US-GLAXOSMITHKLINE-A0612186A

PATIENT
  Age: 27 Year
  Sex: Male

DRUGS (4)
  1. PAXIL [Suspect]
     Indication: READING DISORDER
     Dosage: 20MG PER DAY
     Route: 048
     Dates: start: 20060301
  2. PAXIL [Suspect]
     Indication: DRUG USE FOR UNKNOWN INDICATION
     Dosage: 12.5MG PER DAY
     Route: 048
     Dates: start: 20060501
  3. FLOVENT [Concomitant]
  4. SEREVENT [Concomitant]

REACTIONS (2)
  - DEPRESSION [None]
  - DIZZINESS [None]
